FAERS Safety Report 6270852-1 (Version None)
Quarter: 2009Q3

REPORT INFORMATION
  Report Type: 
  Country: None (occurrence: None)
  Receive Date: 20090716
  Receipt Date: 20090708
  Transmission Date: 20100115
  Serious: Yes (Other)
  Sender: FDA-Public Use
  Company Number: BR-WYE-H10082009

PATIENT
  Sex: Female

DRUGS (1)
  1. EFFEXOR XR [Suspect]
     Dosage: UNKNOWN
     Route: 048

REACTIONS (21)
  - ALCOHOL INTOLERANCE [None]
  - ASTHMA [None]
  - BRUXISM [None]
  - CANDIDIASIS [None]
  - DRUG WITHDRAWAL SYNDROME [None]
  - DRY SKIN [None]
  - GOITRE [None]
  - HYPERTHYROIDISM [None]
  - HYPOTHYROIDISM [None]
  - INTESTINAL OBSTRUCTION [None]
  - MUSCLE RIGIDITY [None]
  - MUSCLE SPASMS [None]
  - NAIL DISORDER [None]
  - NECK PAIN [None]
  - NUCHAL RIGIDITY [None]
  - PEAU D'ORANGE [None]
  - THYROID CANCER [None]
  - THYROID NEOPLASM [None]
  - THYROIDITIS [None]
  - TORTICOLLIS [None]
  - WEIGHT INCREASED [None]
